FAERS Safety Report 9547131 (Version 3)
Quarter: 2013Q4

REPORT INFORMATION
  Report Type: Report from Study
  Country: AU (occurrence: AU)
  Receive Date: 20130924
  Receipt Date: 20131206
  Transmission Date: 20140711
  Serious: Yes (Other)
  Sender: FDA-Public Use
  Company Number: PHHY2013AU105773

PATIENT
  Age: 49 Year
  Sex: Female

DRUGS (7)
  1. CLOZARIL [Suspect]
     Dosage: 300 MG, QD (300 MG, NOCTE)
     Route: 048
     Dates: start: 20130206, end: 20130828
  2. BRONCHODILATORS [Concomitant]
  3. THALLIUM [Concomitant]
     Dosage: UNK
  4. AMISULPRIDE [Concomitant]
     Dosage: 400 MG, BID
     Route: 048
  5. ATORVASTATIN [Concomitant]
     Dosage: 20 MG, QD (20 MG, NOCTE)
     Route: 048
  6. PERINDOPRIL [Concomitant]
     Dosage: 2.5 MG, DAILY
     Route: 048
  7. VENTOLIN                           /00942701/ [Concomitant]
     Dosage: 100 UG, Q4H

REACTIONS (18)
  - Cardiac disorder [Unknown]
  - Ventricular hypokinesia [Unknown]
  - Echocardiogram abnormal [Unknown]
  - Electrocardiogram ST segment elevation [Unknown]
  - Chest pain [Recovering/Resolving]
  - Myocardial ischaemia [Unknown]
  - Blood pressure increased [Unknown]
  - Myocardial infarction [Unknown]
  - Electrocardiogram T wave abnormal [Unknown]
  - Electrocardiogram QT prolonged [Unknown]
  - Tachycardia [Unknown]
  - Exercise tolerance decreased [Unknown]
  - C-reactive protein increased [Unknown]
  - Computerised tomogram thorax abnormal [Unknown]
  - Mitral valve incompetence [Unknown]
  - Pulmonary valve incompetence [Unknown]
  - Pyrexia [Unknown]
  - Fatigue [Unknown]
